FAERS Safety Report 5328309-8 (Version None)
Quarter: 2007Q2

REPORT INFORMATION
  Report Type: 
  Country: None (occurrence: None)
  Receive Date: 20070518
  Receipt Date: 20070509
  Transmission Date: 20071010
  Serious: Yes (Hospitalization)
  Sender: FDA-Public Use
  Company Number: CZ-JNJFOC-20070502710

PATIENT
  Age: 2 Decade

DRUGS (1)
  1. REMICADE [Suspect]
     Indication: CROHN'S DISEASE
     Dosage: ^DOSE STRENGTH 100 MG^
     Route: 042

REACTIONS (3)
  - HEADACHE [None]
  - PAPILLOEDEMA [None]
  - VISUAL DISTURBANCE [None]
